FAERS Safety Report 9437187 (Version 3)
Quarter: 2013Q4

REPORT INFORMATION
  Report Type: Spontaneous
  Country: GB (occurrence: GB)
  Receive Date: 20130802
  Receipt Date: 20131221
  Transmission Date: 20140711
  Serious: Yes (Life-Threatening, Hospitalization, Other)
  Sender: FDA-Public Use
  Company Number: PHFR2013GB004065

PATIENT
  Sex: Male

DRUGS (6)
  1. CLOZARIL [Suspect]
     Indication: SCHIZOPHRENIA
     Dosage: UNK
     Route: 048
     Dates: start: 1993
  2. CLOZARIL [Suspect]
     Dosage: 500 MG, DAILY
     Route: 048
  3. CLOZARIL [Suspect]
     Dosage: 400 MG, DAILY
     Route: 048
  4. CLOZARIL [Suspect]
     Dosage: UNK
     Dates: start: 20010701
  5. CLOZARIL [Suspect]
     Dosage: 550 MG, UNK
     Route: 048
  6. CLOZARIL [Suspect]
     Dosage: 500 MG, UNK
     Route: 048

REACTIONS (15)
  - Abnormal behaviour [Unknown]
  - Incorrect dose administered [Unknown]
  - Depressed level of consciousness [Unknown]
  - Circulatory collapse [Unknown]
  - Schizophrenia [Unknown]
  - Mental impairment [Unknown]
  - Delusion [Unknown]
  - Malaise [Unknown]
  - Decreased activity [Unknown]
  - Injury [Unknown]
  - Speech disorder [Unknown]
  - Hypophagia [Unknown]
  - Feeling abnormal [Unknown]
  - Withdrawal syndrome [Unknown]
  - Hyperhidrosis [Unknown]
